FAERS Safety Report 8080589-4 (Version None)
Quarter: 2012Q1

REPORT INFORMATION
  Report Type: 
  Country: None (occurrence: None)
  Receive Date: 20120130
  Receipt Date: 20120124
  Transmission Date: 20120608
  Serious: Yes (Death, Life-Threatening, Hospitalization)
  Sender: FDA-Public Use
  Company Number: JP-PFIZER INC-2011199904

PATIENT
  Age: 80 Year
  Sex: Male
  Weight: 52.7 kg

DRUGS (2)
  1. ASPIRIN [Concomitant]
     Dosage: UNK
  2. SUTENT [Suspect]
     Indication: RENAL CELL CARCINOMA
     Dosage: 37.5 MG, 1X/DAY
     Route: 048
     Dates: start: 20110806, end: 20110818

REACTIONS (3)
  - PULMONARY ALVEOLAR HAEMORRHAGE [None]
  - MULTI-ORGAN FAILURE [None]
  - PNEUMONIA [None]
